FAERS Safety Report 4404907-0 (Version None)
Quarter: 2004Q3

REPORT INFORMATION
  Report Type: 
  Country: None (occurrence: None)
  Receive Date: 20040716
  Receipt Date: 20040706
  Transmission Date: 20050211
  Serious: No
  Sender: FDA-Public Use
  Company Number: 2004-02825

PATIENT
  Age: 73 Year
  Sex: Female

DRUGS (5)
  1. OXYTROL [Suspect]
     Indication: BLADDER DISORDER
     Dosage: 1 PATCH, 2/WEEK, TRANSDERMAL
     Route: 062
     Dates: start: 20040616, end: 20040618
  2. TIKOSYN [Concomitant]
  3. ENALAPRIL MALEATE [Concomitant]
  4. LIPITOR [Concomitant]
  5. PLAVIX [Concomitant]

REACTIONS (1)
  - HEART RATE INCREASED [None]
